FAERS Safety Report 19855219 (Version 3)
Quarter: 2021Q4

REPORT INFORMATION
  Report Type: Report from Study
  Country: ES (occurrence: None)
  Receive Date: 20210920
  Receipt Date: 20211220
  Transmission Date: 20220303
  Serious: Yes (Death, Other)
  Sender: FDA-Public Use
  Company Number: ES-ROCHE-2911792

PATIENT

DRUGS (3)
  1. TOCILIZUMAB [Suspect]
     Active Substance: TOCILIZUMAB
     Indication: COVID-19 pneumonia
     Dosage: THE RECOMMENDED POSOLOGY BY THE SMPC IS 8 MG PER KG IN PATIENTS WEIGHING GREATER THAN OR EQUAL TO 30
     Route: 042
     Dates: start: 20200401
  2. IMIPENEM [Concomitant]
     Active Substance: IMIPENEM
     Indication: Pneumonia
     Dates: start: 20200514, end: 20200524
  3. RUXOLITINIB [Concomitant]
     Active Substance: RUXOLITINIB
     Indication: COVID-19
     Dates: start: 20200508, end: 20200510

REACTIONS (5)
  - Peritonitis [Fatal]
  - Large intestine perforation [Not Recovered/Not Resolved]
  - Respiratory failure [Not Recovered/Not Resolved]
  - Pneumonia klebsiella [Recovered/Resolved]
  - Pneumonia pseudomonal [Recovered/Resolved]

NARRATIVE: CASE EVENT DATE: 20200510
